FAERS Safety Report 5759331-5 (Version None)
Quarter: 2008Q2

REPORT INFORMATION
  Report Type: 
  Country: None (occurrence: None)
  Receive Date: 20080530
  Receipt Date: 20080519
  Transmission Date: 20081010
  Serious: Yes (Hospitalization)
  Sender: FDA-Public Use
  Company Number: 2008-177226-NL

PATIENT
  Age: 37 Year
  Sex: Male

DRUGS (10)
  1. ROCURONIUM BROMIDE [Suspect]
     Indication: MUSCLE RELAXANT THERAPY
     Dosage: INTRAVENOUS (NOS)
     Route: 042
     Dates: start: 20080417, end: 20080417
  2. SEVOFLURANE [Suspect]
     Indication: INDUCTION AND MAINTENANCE OF ANAESTHESIA
     Dosage: RESPIRATORY (INHALATION)
     Route: 055
     Dates: start: 20080417, end: 20080417
  3. LIDOCAINE [Suspect]
     Indication: LOCAL ANAESTHESIA
     Dosage: EPIDURAL
     Route: 008
     Dates: start: 20080417, end: 20080417
  4. LIDOCAINE [Suspect]
     Indication: LOCAL ANAESTHESIA
     Dosage: EPIDURAL
     Route: 008
     Dates: start: 20080417, end: 20080417
  5. LIDOCAINE [Suspect]
     Indication: LOCAL ANAESTHESIA
     Dosage: EPIDURAL
     Route: 008
     Dates: start: 20080417, end: 20080417
  6. PROPOFOL [Suspect]
     Indication: INDUCTION OF ANAESTHESIA
     Dosage: INTRAVENOUS (NOS)
     Route: 042
     Dates: start: 20080417, end: 20080417
  7. FENTANYL CITRATE [Concomitant]
  8. ATROPINE SULFATE [Concomitant]
  9. CEFAZOLIN [Concomitant]
  10. TACALCITOL [Concomitant]

REACTIONS (1)
  - RHABDOMYOLYSIS [None]
